FAERS Safety Report 21156376 (Version 1)
Quarter: 2022Q3

REPORT INFORMATION
  Report Type: Spontaneous
  Country: US (occurrence: None)
  Receive Date: 20220801
  Receipt Date: 20220801
  Transmission Date: 20221026
  Serious: Yes (Other)
  Sender: FDA-Public Use
  Company Number: None

PATIENT
  Sex: Female

DRUGS (12)
  1. ENBREL [Suspect]
     Active Substance: ETANERCEPT
     Indication: Asthma
     Dosage: 50 MG/ML SUBCUTANEOUS?INJECT 50 MG INTO THE SKIN EVERY 7 DAYS?
     Route: 058
     Dates: start: 20220216
  2. ALBUTEROL AER HFA [Concomitant]
  3. ALLEGRA ALRG TAB [Concomitant]
  4. AMPHET/DEXTR TAB [Concomitant]
  5. CYCLOBENZAPR TAB [Concomitant]
  6. ENBREL SRCLK INJ [Concomitant]
  7. MELOXICAM TAB [Concomitant]
  8. MULTIVITAMIN TAB [Concomitant]
  9. RITALIN TAB [Concomitant]
  10. SUDAFED PE TAB [Concomitant]
  11. VENLAFAXINE [Concomitant]
     Active Substance: VENLAFAXINE HYDROCHLORIDE
  12. VENLAFAXINE [Concomitant]
     Active Substance: VENLAFAXINE HYDROCHLORIDE

REACTIONS (2)
  - Asthma [None]
  - Brain injury [None]
